FAERS Safety Report 9606434 (Version 2)
Quarter: 2013Q4

REPORT INFORMATION
  Report Type: Spontaneous
  Country: US (occurrence: US)
  Receive Date: 20131008
  Receipt Date: 20131008
  Transmission Date: 20140711
  Serious: No
  Sender: FDA-Public Use
  Company Number: US-AMGEN-USASP2013047918

PATIENT
  Age: 71 Year
  Sex: Female
  Weight: 57.6 kg

DRUGS (3)
  1. PROLIA [Suspect]
     Indication: OSTEOPOROSIS POSTMENOPAUSAL
     Dosage: 60 MG, Q6MO
     Route: 058
     Dates: start: 20130515
  2. FEMARA [Concomitant]
     Dosage: 2.5 MG, QD
     Route: 048
  3. LEXAPRO [Concomitant]
     Dosage: 10 MG, QD
     Route: 048

REACTIONS (4)
  - Musculoskeletal pain [Recovering/Resolving]
  - Arthralgia [Recovering/Resolving]
  - Insomnia [Unknown]
  - Myalgia [Recovering/Resolving]
